FAERS Safety Report 5267414-1 (Version None)
Quarter: 2007Q1

REPORT INFORMATION
  Report Type: 
  Country: None (occurrence: None)
  Receive Date: 20070316
  Receipt Date: 20070305
  Transmission Date: 20070707
  Serious: Yes (Death)
  Sender: FDA-Public Use
  Company Number: FR-ROCHE-485876

PATIENT
  Age: 81 Year
  Sex: Female

DRUGS (2)
  1. XELODA [Suspect]
     Indication: DRUG USE FOR UNKNOWN INDICATION
     Route: 048
     Dates: start: 20040601
  2. ARIXTRA [Suspect]
     Indication: PARANEOPLASTIC SYNDROME
     Route: 058
     Dates: start: 20061212, end: 20061220

REACTIONS (1)
  - GASTROINTESTINAL HAEMORRHAGE [None]
